FAERS Safety Report 10705064 (Version 1)
Quarter: 2015Q1

REPORT INFORMATION
  Report Type: Spontaneous
  Country: US (occurrence: None)
  Receive Date: 20150109
  Receipt Date: 20150109
  Transmission Date: 20150721
  Serious: Yes (Hospitalization)
  Sender: FDA-Public Use
  Company Number: None

PATIENT
  Age: 41 Year
  Sex: Female
  Weight: 106.14 kg

DRUGS (29)
  1. ADVAIR HFA [Concomitant]
     Active Substance: FLUTICASONE PROPIONATE\SALMETEROL XINAFOATE
  2. POTASSIUM CHLORIDE. [Concomitant]
     Active Substance: POTASSIUM CHLORIDE
  3. SAPHRIS [Concomitant]
     Active Substance: ASENAPINE MALEATE
  4. REMICADE [Suspect]
     Active Substance: INFLIXIMAB
     Indication: CROHN^S DISEASE
     Dosage: EVERY 8 WEEKS
     Route: 042
     Dates: start: 20130406, end: 20140415
  5. APIDRA SOLOSTAR [Concomitant]
     Active Substance: INSULIN GLULISINE
  6. DIAZEPAM. [Concomitant]
     Active Substance: DIAZEPAM
  7. FUROSEMIDE. [Concomitant]
     Active Substance: FUROSEMIDE
  8. HYOSCAMINE [Concomitant]
  9. REMICADE [Suspect]
     Active Substance: INFLIXIMAB
     Indication: ENTERITIS
     Dosage: EVERY 8 WEEKS
     Route: 042
     Dates: start: 20130406, end: 20140415
  10. APRISO [Concomitant]
     Active Substance: MESALAMINE
  11. ESCITALOPRAM [Concomitant]
     Active Substance: ESCITALOPRAM OXALATE
  12. FEROUS SULFATE [Concomitant]
  13. NEXIUM [Concomitant]
     Active Substance: ESOMEPRAZOLE MAGNESIUM
  14. DESONIDE CREAM [Concomitant]
  15. FLUTICASONE PROPIONATE. [Concomitant]
     Active Substance: FLUTICASONE PROPIONATE
  16. SUMATRIPTAN. [Concomitant]
     Active Substance: SUMATRIPTAN
  17. VITAMIN D [Concomitant]
     Active Substance: CHOLECALCIFEROL
  18. CLONAZEPAM. [Concomitant]
     Active Substance: CLONAZEPAM
  19. IPRATROPIUM BROMIDE/ALBUTEROL [Concomitant]
  20. PROMETHAZINE [Concomitant]
     Active Substance: PROMETHAZINE\PROMETHAZINE HYDROCHLORIDE
  21. LOSARTAN [Concomitant]
     Active Substance: LOSARTAN
  22. CLINDAMYCIN [Concomitant]
     Active Substance: CLINDAMYCIN\CLINDAMYCIN PHOSPHATE
  23. ALBUTEROL. [Concomitant]
     Active Substance: ALBUTEROL
  24. AMBIEN [Concomitant]
     Active Substance: ZOLPIDEM TARTRATE
  25. NORCO [Concomitant]
     Active Substance: ACETAMINOPHEN\HYDROCODONE BITARTRATE
  26. SUCRALFATE. [Concomitant]
     Active Substance: SUCRALFATE
  27. VICTOZA [Concomitant]
     Active Substance: LIRAGLUTIDE
  28. MONTELUKAST [Concomitant]
     Active Substance: MONTELUKAST SODIUM
  29. PREDNISONE. [Concomitant]
     Active Substance: PREDNISONE

REACTIONS (6)
  - Ulcer [None]
  - Scab [None]
  - Abdominal pain [None]
  - Rectal haemorrhage [None]
  - Vomiting [None]
  - Neuralgia [None]

NARRATIVE: CASE EVENT DATE: 20131001
